FAERS Safety Report 17433916 (Version 1)
Quarter: 2020Q1

REPORT INFORMATION
  Report Type: Spontaneous
  Country: SI (occurrence: SI)
  Receive Date: 20200219
  Receipt Date: 20200219
  Transmission Date: 20200409
  Serious: Yes (Other)
  Sender: FDA-Public Use
  Company Number: SI-TEVA-2020-SI-1187736

PATIENT
  Age: 61 Year
  Sex: Female

DRUGS (21)
  1. SUMAMED 500 MG [Suspect]
     Active Substance: AZITHROMYCIN
     Indication: PNEUMONIA
     Dosage: 500 MG
     Route: 042
     Dates: start: 20200112, end: 20200114
  2. LYRICA [Concomitant]
     Active Substance: PREGABALIN
     Dosage: 75 MILLIGRAM DAILY; 75MG, 1 CAPS IN THE MORNINGS
     Route: 048
     Dates: start: 20200112, end: 20200130
  3. MEDROL [Concomitant]
     Active Substance: METHYLPREDNISOLONE
     Dosage: 32 MG
     Dates: start: 20200121
  4. LEKADOL 500 MG [Concomitant]
     Dosage: 1500MG, UP TO 3X1/DAY AS NECESSARY
     Dates: start: 20200112, end: 20200130
  5. ACIPAN 40 MG [Concomitant]
     Dosage: 40 MILLIGRAM DAILY; 1 TBL IN THE MORNINGS
     Route: 048
     Dates: start: 20200112, end: 20200130
  6. AMOKSIKLAV [Concomitant]
     Active Substance: AMOXICILLIN\CLAVULANATE POTASSIUM
     Indication: PNEUMONIA
     Dosage: 0.6 GM
     Route: 042
     Dates: start: 20200112, end: 20200114
  7. SPIRIVA 18 MICROGRAM [Concomitant]
     Dosage: 18 MCG
     Dates: start: 20200112, end: 20200130
  8. AMOKSIKLAV [Concomitant]
     Active Substance: AMOXICILLIN\CLAVULANATE POTASSIUM
     Route: 042
     Dates: start: 20200115, end: 20200116
  9. HYDROCORTISONE 10 MG [Concomitant]
     Dosage: 10MG, 2+1+1
     Route: 048
     Dates: start: 20200121, end: 20200124
  10. FRAGMIN 5000 IE [Concomitant]
     Dosage: 5000 IU
     Dates: start: 20200112, end: 20200130
  11. SOLU-CORTEF [Concomitant]
     Active Substance: HYDROCORTISONE SODIUM SUCCINATE
     Dosage: 50 MG
     Route: 042
     Dates: start: 20200114, end: 20200120
  12. BERODUAL [Concomitant]
     Active Substance: FENOTEROL HYDROBROMIDE\IPRATROPIUM BROMIDE
     Dosage: 2ML, 2ML+2ML SALINE SOLUTION
     Dates: start: 20200112, end: 20200130
  13. DULCOLAX NOS [Concomitant]
     Active Substance: BISACODYL OR DOCUSATE SODIUM
     Indication: CONSTIPATION
     Dosage: 1 DOSAGE FORM
     Route: 054
     Dates: start: 20200112, end: 20200130
  14. PORTALAC [Concomitant]
     Active Substance: LACTULOSE
     Indication: CONSTIPATION
     Dosage: 2 TABLESPOONS
     Route: 048
     Dates: start: 20200112, end: 20200130
  15. TAMIFLU [Concomitant]
     Active Substance: OSELTAMIVIR PHOSPHATE
     Dosage: 75 MG
     Route: 048
     Dates: start: 20200117, end: 20200126
  16. SOLU CORTEF 100 MG [Concomitant]
     Dosage: 100 MG
     Route: 042
     Dates: start: 20200112, end: 20200114
  17. ASPIRIN PROTECT 100MG [Concomitant]
     Dosage: 100 MILLIGRAM DAILY; 100MG, 1 TBL AT NOON
     Route: 048
     Dates: start: 20200112, end: 20200130
  18. AMOKSIKLAV 1000 MG [Concomitant]
     Dosage: 1000 MG
     Route: 048
     Dates: start: 20200117, end: 20200125
  19. IRUMED 10 MG [Concomitant]
     Dosage: 15MG, 1TBL IN THE MORNINGS AND 1/2 TBL IN THE EVENINGS
     Dates: start: 20200121, end: 20200130
  20. DAKTARIN [Concomitant]
     Active Substance: MICONAZOLE NITRATE
     Dosage: 3 DOSAGE FORMS
     Route: 048
  21. FOSTER 100 MIKROGRAMM/6 MIKROGRAMM [Concomitant]
     Dosage: 4 DOSAGE FORMS, 100/6MCG/INHALATION, 2X2
     Dates: start: 20200112, end: 20200130

REACTIONS (1)
  - Drug-induced liver injury [Recovered/Resolved]

NARRATIVE: CASE EVENT DATE: 20200117
